FAERS Safety Report 7051847-7 (Version None)
Quarter: 2010Q4

REPORT INFORMATION
  Report Type: 
  Country: None (occurrence: None)
  Receive Date: 20101019
  Receipt Date: 20101007
  Transmission Date: 20110411
  Serious: Yes (Life-Threatening)
  Sender: FDA-Public Use
  Company Number: JP-ROCHE-730467

PATIENT
  Sex: Female
  Weight: 69.2 kg

DRUGS (24)
  1. TOCILIZUMAB [Suspect]
     Indication: RHEUMATOID ARTHRITIS
     Dosage: DOSAGE IS UNCERTAIN.
     Route: 041
     Dates: start: 20080826, end: 20080826
  2. TOCILIZUMAB [Suspect]
     Route: 041
     Dates: start: 20080922, end: 20080922
  3. TOCILIZUMAB [Suspect]
     Route: 041
     Dates: start: 20081020, end: 20081020
  4. TOCILIZUMAB [Suspect]
     Route: 041
     Dates: start: 20081117, end: 20081117
  5. TOCILIZUMAB [Suspect]
     Route: 041
     Dates: start: 20081215, end: 20081215
  6. TOCILIZUMAB [Suspect]
     Route: 041
     Dates: start: 20090113, end: 20090113
  7. TOCILIZUMAB [Suspect]
     Route: 041
     Dates: start: 20090210, end: 20090210
  8. TOCILIZUMAB [Suspect]
     Route: 041
     Dates: start: 20090310, end: 20090310
  9. TOCILIZUMAB [Suspect]
     Route: 041
     Dates: start: 20090407, end: 20090407
  10. TOCILIZUMAB [Suspect]
     Route: 041
     Dates: start: 20090512, end: 20090512
  11. TOCILIZUMAB [Suspect]
     Route: 041
  12. RHEUMATREX [Concomitant]
     Dosage: DIVIDED INTO 2 DOSES
     Route: 048
     Dates: end: 20090113
  13. RHEUMATREX [Concomitant]
     Route: 048
     Dates: start: 20090114, end: 20090210
  14. RHEUMATREX [Concomitant]
     Dosage: DIVIDED INTO 2 DOSES.
     Route: 048
     Dates: start: 20090211
  15. RIMATIL [Concomitant]
     Route: 048
  16. PREDONINE [Concomitant]
     Route: 048
     Dates: end: 20090113
  17. PREDONINE [Concomitant]
     Route: 048
     Dates: start: 20090114, end: 20090210
  18. PREDONINE [Concomitant]
     Route: 048
     Dates: start: 20090211, end: 20090310
  19. PREDONINE [Concomitant]
     Route: 048
     Dates: start: 20090311
  20. NORVASC [Concomitant]
     Route: 048
  21. PROTECADIN [Concomitant]
     Route: 048
  22. FOLIAMIN [Concomitant]
     Route: 048
  23. BONALON [Concomitant]
     Route: 048
  24. VOLTAREN [Concomitant]
     Route: 061

REACTIONS (3)
  - HEPATIC FUNCTION ABNORMAL [None]
  - HYPERLIPIDAEMIA [None]
  - NEOPLASM MALIGNANT [None]
